FAERS Safety Report 6628385-6 (Version None)
Quarter: 2010Q1

REPORT INFORMATION
  Report Type: 
  Country: None (occurrence: None)
  Receive Date: 20100311
  Receipt Date: 20100225
  Transmission Date: 20100710
  Serious: Yes (Death)
  Sender: FDA-Public Use
  Company Number: AR-ROCHE-688685

PATIENT
  Sex: Male

DRUGS (3)
  1. CAPECITABINE [Suspect]
     Indication: COLON CANCER
     Dosage: FREQUENCY: DAILY
     Route: 048
     Dates: start: 20091201, end: 20100101
  2. BEVACIZUMAB [Suspect]
     Indication: COLON CANCER
     Route: 042
     Dates: start: 20091201, end: 20100101
  3. OXALIPLATINO [Concomitant]
     Indication: COLON CANCER
     Dates: end: 20100101

REACTIONS (1)
  - MALIGNANT NEOPLASM PROGRESSION [None]
